FAERS Safety Report 7243927-8 (Version None)
Quarter: 2011Q1

REPORT INFORMATION
  Report Type: 
  Country: None (occurrence: None)
  Receive Date: 20110125
  Receipt Date: 20110119
  Transmission Date: 20110831
  Serious: Yes (Life-Threatening, Hospitalization)
  Sender: FDA-Public Use
  Company Number: B0694251A

PATIENT
  Sex: Female

DRUGS (3)
  1. CLAMOXYL [Suspect]
     Indication: ENDOCARDITIS
     Route: 048
     Dates: start: 20101205, end: 20101215
  2. PREVISCAN [Suspect]
     Indication: ATRIAL FIBRILLATION
     Dosage: 15MG PER DAY
     Route: 048
     Dates: end: 20101212
  3. MULTIPLE DRUG THERAPY [Concomitant]

REACTIONS (6)
  - RENAL TUBULAR NECROSIS [None]
  - INTERNATIONAL NORMALISED RATIO INCREASED [None]
  - RENAL FAILURE ACUTE [None]
  - DRUG INTERACTION [None]
  - ANAEMIA [None]
  - MELAENA [None]
